FAERS Safety Report 9167493 (Version 1)
Quarter: 2013Q1

REPORT INFORMATION
  Report Type: Spontaneous
  Country: US (occurrence: None)
  Receive Date: 20130301
  Receipt Date: 20130301
  Transmission Date: 20140127
  Serious: Yes (Hospitalization)
  Sender: FDA-Public Use
  Company Number: C-13-0071

PATIENT
  Age: 49 Year
  Sex: Female

DRUGS (17)
  1. PHENYTOIN ORAL SUSPENSION, USP 125MG/5ML [Suspect]
     Indication: EPILEPSY
     Dosage: 2 TSP, BID, ORALLY
     Route: 048
     Dates: start: 20130130, end: 20130212
  2. NORVASC [Concomitant]
  3. MAXZIDE [Concomitant]
  4. CLONIDINE [Concomitant]
  5. ESTRATEST [Concomitant]
  6. SYNTHROID [Concomitant]
  7. ZOFRAN [Concomitant]
  8. NEXIUM [Concomitant]
  9. COLACE [Concomitant]
  10. DURAGESIC [Concomitant]
  11. MS CONTIN [Concomitant]
  12. DILAUDID [Concomitant]
  13. VISTARIL [Concomitant]
  14. POTASSIUM [Concomitant]
  15. RITALIN [Concomitant]
  16. CYMBALTA [Concomitant]
  17. EPI-PEN [Concomitant]

REACTIONS (13)
  - Convulsion [None]
  - Gastrointestinal motility disorder [None]
  - Drug intolerance [None]
  - Pruritus generalised [None]
  - Dizziness [None]
  - Vision blurred [None]
  - Dysphonia [None]
  - Diplopia [None]
  - Tinnitus [None]
  - Nausea [None]
  - Fatigue [None]
  - Dyspnoea [None]
  - Accidental overdose [None]
